FAERS Safety Report 11123677 (Version 4)
Quarter: 2015Q4

REPORT INFORMATION
  Report Type: Report from Study
  Country: ES (occurrence: ES)
  Receive Date: 20150519
  Receipt Date: 20151201
  Transmission Date: 20160304
  Serious: Yes (Other)
  Sender: FDA-Public Use
  Company Number: PHHY2015ES056752

PATIENT
  Age: 9 Year
  Sex: Male

DRUGS (3)
  1. VOTUBIA [Suspect]
     Active Substance: EVEROLIMUS
     Dosage: 5 MG, QD
     Route: 048
     Dates: start: 20140806
  2. LACOSAMIDA [Concomitant]
     Indication: EPILEPSY
     Dosage: 100 MG/12 HOURS
     Route: 065
  3. VIGABATRINA [Concomitant]
     Indication: EPILEPSY
     Dosage: 500 MG/12 HOURS
     Route: 065

REACTIONS (3)
  - Dental caries [Recovered/Resolved]
  - Gingivitis [Recovered/Resolved]
  - Stomatitis [Recovered/Resolved]

NARRATIVE: CASE EVENT DATE: 20150205
